APPROVED DRUG PRODUCT: CATAFLAM
Active Ingredient: DICLOFENAC POTASSIUM
Strength: 25MG
Dosage Form/Route: TABLET;ORAL
Application: A076561 | Product #002 | TE Code: AB
Applicant: AMICI PHARMA INC
Approved: Jul 21, 2021 | RLD: No | RS: No | Type: RX